FAERS Safety Report 6044468-6 (Version None)
Quarter: 2009Q1

REPORT INFORMATION
  Report Type: 
  Country: None (occurrence: None)
  Receive Date: 20090115
  Receipt Date: 20090115
  Transmission Date: 20090719
  Serious: Yes (Life-Threatening, Hospitalization, Other)
  Sender: FDA-Public Use
  Company Number: None

PATIENT
  Age: 49 Year
  Sex: Female
  Weight: 49.8957 kg

DRUGS (2)
  1. SINGULAIR [Suspect]
     Indication: MULTIPLE ALLERGIES
     Dosage: 10 MG 1 AT BEDTIME ONCE DAILY PO
     Route: 048
     Dates: start: 20080912, end: 20090114
  2. SINGULAIR [Suspect]
     Indication: ASTHMA

REACTIONS (2)
  - MEMORY IMPAIRMENT [None]
  - SUICIDE ATTEMPT [None]
